FAERS Safety Report 15109178 (Version 1)
Quarter: 2018Q3

REPORT INFORMATION
  Report Type: Spontaneous
  Country: FR (occurrence: FR)
  Receive Date: 20180705
  Receipt Date: 20180705
  Transmission Date: 20181010
  Serious: Yes (Hospitalization)
  Sender: FDA-Public Use
  Company Number: FR-ABBVIE-18S-056-2409908-00

PATIENT
  Age: 39 Year
  Sex: Female

DRUGS (3)
  1. ZECLAR [Suspect]
     Active Substance: CLARITHROMYCIN
     Indication: BRONCHITIS
     Dosage: 2 DF, QD
     Route: 048
     Dates: start: 20180123, end: 20180129
  2. TOPLEXIL (ACETAMINOPHEN (+) GUAIFENESIN (+) OXOMEMAZINE (+) SODIUM BEN [Suspect]
     Active Substance: ACETAMINOPHEN\GUAIFENESIN\OXOMEMAZINE\SODIUM BENZOATE
     Indication: BRONCHITIS
     Dosage: 10 ML, QD
     Route: 048
     Dates: start: 20180123, end: 20180129
  3. SOLUPRED (PREDNISOLONE SODIUM METAZOATE) [Suspect]
     Active Substance: PREDNISOLONE SODIUM METAZOATE
     Indication: BRONCHITIS
     Dosage: 2.5 DF, QD
     Route: 048
     Dates: start: 20180123, end: 20180129

REACTIONS (1)
  - Persecutory delusion [Recovered/Resolved]

NARRATIVE: CASE EVENT DATE: 20180129
